FAERS Safety Report 22203178 (Version 2)
Quarter: 2023Q2

REPORT INFORMATION
  Report Type: Spontaneous
  Country: US (occurrence: None)
  Receive Date: 20230412
  Receipt Date: 20230425
  Transmission Date: 20230722
  Serious: Yes (Hospitalization)
  Sender: FDA-Public Use
  Company Number: 2023A083753

PATIENT
  Age: 63 Year
  Sex: Female
  Weight: 73.9 kg

DRUGS (3)
  1. BRILINTA [Suspect]
     Active Substance: TICAGRELOR
     Indication: Coronary artery disease
     Route: 048
     Dates: start: 20230218, end: 20230402
  2. ASPIRIN [Suspect]
     Active Substance: ASPIRIN
     Indication: Coronary artery disease
     Route: 048
     Dates: start: 20230219, end: 20230402
  3. INCLISIRAN [Suspect]
     Active Substance: INCLISIRAN
     Indication: Acute coronary syndrome
     Dosage: 300 MG PER 1.5 ML AT BASELINE, DAY 90 AND DAY 270300.0MG UNKNOWN
     Route: 058
     Dates: start: 20230328

REACTIONS (5)
  - Blood loss anaemia [Recovering/Resolving]
  - Melaena [Not Recovered/Not Resolved]
  - Headache [Recovered/Resolved]
  - Hypoaesthesia [Recovered/Resolved]
  - Facial discomfort [Unknown]

NARRATIVE: CASE EVENT DATE: 20230220
